FAERS Safety Report 24634106 (Version 4)
Quarter: 2025Q1

REPORT INFORMATION
  Report Type: Spontaneous
  Country: NO (occurrence: NO)
  Receive Date: 20241119
  Receipt Date: 20250108
  Transmission Date: 20250409
  Serious: Yes (Death)
  Sender: NOVO NORDISK
  Company Number: NO-NOVOPROD-1317413

PATIENT
  Age: 54 Year
  Sex: Male

DRUGS (1)
  1. NOVORAPID [Suspect]
     Active Substance: INSULIN ASPART
     Indication: Type 1 diabetes mellitus
     Route: 058

REACTIONS (1)
  - Hyperglycaemia [Fatal]

NARRATIVE: CASE EVENT DATE: 20241009
